FAERS Safety Report 5420785-5 (Version None)
Quarter: 2007Q3

REPORT INFORMATION
  Report Type: 
  Country: None (occurrence: None)
  Receive Date: 20070816
  Receipt Date: 20070720
  Transmission Date: 20080115
  Serious: Yes (Death)
  Sender: FDA-Public Use
  Company Number: 6036214

PATIENT
  Age: 46 Year
  Sex: Male

DRUGS (6)
  1. FLUCONAZOLE [Suspect]
     Indication: ORAL FUNGAL INFECTION
     Dosage: 50 MG (50 MG, 1 IN 1 D) ORAL
     Route: 048
  2. FENTANYL [Suspect]
     Indication: ORAL PAIN
     Dosage: 2400 MCG (100 MCG, 1 IN 1 HR), 3600 MCG (150 MCG, 1 IN 1 HR) TRANSDERMAL
     Route: 062
  3. METOCLOPRAMIDE [Concomitant]
  4. HYDROCHLORIDE (METOCLOPRAMIDE) [Concomitant]
  5. LIDOCAINE [Concomitant]
  6. ACETAMINOPHEN [Concomitant]

REACTIONS (8)
  - BRAIN OEDEMA [None]
  - DRUG INTERACTION [None]
  - DRUG LEVEL INCREASED [None]
  - DRUG TOXICITY [None]
  - DYSPHAGIA [None]
  - PULMONARY CONGESTION [None]
  - RESPIRATORY DEPRESSION [None]
  - SHOCK [None]
